FAERS Safety Report 6375105-9 (Version None)
Quarter: 2009Q3

REPORT INFORMATION
  Report Type: 
  Country: None (occurrence: None)
  Receive Date: 20090917
  Receipt Date: 20090917
  Transmission Date: 20100115
  Serious: No
  Sender: FDA-Public Use
  Company Number: None

PATIENT
  Age: 39 Year
  Sex: Male

DRUGS (1)
  1. RITUXIMAB 600MG IV [Suspect]

REACTIONS (5)
  - HEADACHE [None]
  - INFUSION RELATED REACTION [None]
  - RASH [None]
  - REFUSAL OF TREATMENT BY PATIENT [None]
  - URTICARIA [None]
